FAERS Safety Report 9169337 (Version 1)
Quarter: 2013Q1

REPORT INFORMATION
  Report Type: Spontaneous
  Country: FR (occurrence: FR)
  Receive Date: 20130318
  Receipt Date: 20130318
  Transmission Date: 20140127
  Serious: Yes (Disabling)
  Sender: FDA-Public Use
  Company Number: FR-009507513-1303FRA005632

PATIENT
  Age: 51 Year
  Sex: Female

DRUGS (13)
  1. ISENTRESS [Suspect]
     Indication: HIV INFECTION
     Dosage: 400 MG, BID
     Route: 048
     Dates: start: 20120503, end: 20120710
  2. KIVEXA [Suspect]
     Indication: HIV INFECTION
     Dosage: 1 DF, QD
     Route: 048
     Dates: start: 20080708, end: 20120710
  3. PREZISTA [Suspect]
     Indication: HIV INFECTION
     Dosage: 400 MG, BID
     Route: 048
     Dates: start: 20100916, end: 20120503
  4. NORVIR [Suspect]
     Indication: HIV INFECTION
     Dosage: 100 MG, QD
     Route: 048
     Dates: start: 20070712, end: 20120503
  5. HYDROCORTISONE [Concomitant]
     Indication: ADRENAL INSUFFICIENCY
     Dosage: 10 MG, TID
     Route: 048
  6. AVLOCARDYL [Concomitant]
     Indication: PORTAL HYPERTENSION
     Dosage: 20 MG, QID
     Route: 048
  7. INEXIUM [Concomitant]
     Dosage: 20 MG, UNK
     Route: 048
  8. STILNOX [Concomitant]
     Dosage: 10 MG, UNK
  9. CACIT VITAMINE D3 [Concomitant]
     Dosage: 1 DF, BID
     Route: 048
  10. METHADONE HYDROCHLORIDE [Concomitant]
     Dosage: 40 MG, QD
     Route: 048
  11. SEREVENT [Concomitant]
     Dosage: 1 DF, BID
     Route: 055
  12. SPIRIVA [Concomitant]
     Dosage: 1 DF, QD
  13. TOPALGIC LP [Concomitant]
     Dosage: 150 MG, BID
     Route: 048
     Dates: start: 20100906

REACTIONS (2)
  - Neuropathy peripheral [Unknown]
  - Pain in extremity [Unknown]
